FAERS Safety Report 10701051 (Version 2)
Quarter: 2015Q1

REPORT INFORMATION
  Report Type: Spontaneous
  Country: US (occurrence: US)
  Receive Date: 20150109
  Receipt Date: 20150109
  Transmission Date: 20150721
  Serious: Yes (Hospitalization, Other)
  Sender: FDA-Public Use
  Company Number: US-PFIZER INC-2014188533

PATIENT
  Age: 68 Year
  Sex: Female
  Weight: 107 kg

DRUGS (22)
  1. DIGOXIN. [Concomitant]
     Active Substance: DIGOXIN
     Dosage: 0.25 MG, DAILY
  2. CALCIUM 600+D /00944201/ [Concomitant]
     Dosage: UNK, 1X/ DAY
  3. LOSARTAN [Concomitant]
     Active Substance: LOSARTAN
     Dosage: 25 MG, DAILY
  4. METOLAZONE. [Concomitant]
     Active Substance: METOLAZONE
     Dosage: 5 MG, DAILY
  5. LYRICA [Suspect]
     Active Substance: PREGABALIN
     Indication: PAIN
     Dosage: 100 MG, AT BED TIMES
     Route: 048
     Dates: start: 2007
  6. BUSPIRONE [Concomitant]
     Active Substance: BUSPIRONE HYDROCHLORIDE
     Dosage: 15 MG, 4X/DAY
  7. RANITIDINE [Concomitant]
     Active Substance: RANITIDINE\RANITIDINE HYDROCHLORIDE
     Dosage: 150 MG, DAILY
  8. FUROSEMIDE. [Concomitant]
     Active Substance: FUROSEMIDE
     Dosage: 40 MG, 1X/DAY
  9. WARFARIN [Concomitant]
     Active Substance: WARFARIN
     Dosage: UNK, 1X/ DAY (EVERY NIGHT)
  10. AMIODARONE [Concomitant]
     Active Substance: AMIODARONE
     Dosage: 200 MG, DAILY
  11. MULTIVITAMINS [Concomitant]
     Active Substance: VITAMINS
     Dosage: UNK, 1X/ DAY
  12. CARVEDILOL. [Concomitant]
     Active Substance: CARVEDILOL
     Dosage: 6.2 MG, 2X/DAY
  13. METFORMIN [Concomitant]
     Active Substance: METFORMIN HYDROCHLORIDE
     Dosage: 1000 MG, 2X/DAY
  14. CYMBALTA [Concomitant]
     Active Substance: DULOXETINE HYDROCHLORIDE
     Dosage: 60 MG, DAILY (BEDTIME)
  15. ACETYLSALICYLIC ACID [Concomitant]
     Active Substance: ASPIRIN
     Dosage: 325 MG, DAILY
  16. LANTUS [Concomitant]
     Active Substance: INSULIN GLARGINE
     Dosage: 45 IU, 1X/DAY (AT BEDTIME)
     Route: 058
  17. VITAMIN B12 [Concomitant]
     Active Substance: CYANOCOBALAMIN
     Dosage: 2500 ?G, DAILY
  18. TYLENOL WITH CODEINE [Concomitant]
     Active Substance: ACETAMINOPHEN\CODEINE PHOSPHATE
     Dosage: 1 EVERY 6 HOURS AS NEEDED
  19. LYRICA [Suspect]
     Active Substance: PREGABALIN
     Indication: PHANTOM PAIN
  20. GLIPIZIDE. [Concomitant]
     Active Substance: GLIPIZIDE
     Dosage: 10 MG, 2X/DAY (BREAKFAST AND SUPPER)
  21. LEVOTHYROXINE [Concomitant]
     Active Substance: LEVOTHYROXINE
     Dosage: 0.5 MG, DAILY
  22. ATORVASTATIN [Concomitant]
     Active Substance: ATORVASTATIN
     Dosage: 40 MG, 1X/ DAY

REACTIONS (5)
  - Limb deformity [Unknown]
  - Bronchitis [Unknown]
  - Cardiac failure congestive [Unknown]
  - Aphonia [Not Recovered/Not Resolved]
  - Hypersensitivity [Unknown]

NARRATIVE: CASE EVENT DATE: 2008
